FAERS Safety Report 5261237-5 (Version None)
Quarter: 2007Q1

REPORT INFORMATION
  Report Type: 
  Country: None (occurrence: None)
  Receive Date: 20070309
  Receipt Date: 20070226
  Transmission Date: 20070707
  Serious: Yes (Other)
  Sender: FDA-Public Use
  Company Number: DE-PFIZER INC-2007016197

PATIENT
  Age: 84 Year
  Sex: Female

DRUGS (1)
  1. HALCION [Suspect]
     Indication: SLEEP DISORDER
     Dosage: DAILY DOSE:.25MG
     Route: 048

REACTIONS (4)
  - AGGRESSION [None]
  - DELUSION [None]
  - HALLUCINATION [None]
  - NIGHTMARE [None]
